FAERS Safety Report 12321722 (Version 1)
Quarter: 2016Q2

REPORT INFORMATION
  Report Type: Spontaneous
  Country: US (occurrence: None)
  Receive Date: 20160429
  Receipt Date: 20160429
  Transmission Date: 20160815
  Serious: Yes (Hospitalization)
  Sender: FDA-Public Use
  Company Number: None

PATIENT
  Age: 63 Year
  Sex: Male
  Weight: 73.84 kg

DRUGS (16)
  1. CETUXIMAB 250MG/M2 [Suspect]
     Active Substance: CETUXIMAB
     Indication: SQUAMOUS CELL CARCINOMA OF HEAD AND NECK
     Route: 042
     Dates: start: 20160217, end: 20160406
  2. P0REDNISONE [Concomitant]
  3. CEPHALEXIN. [Concomitant]
     Active Substance: CEPHALEXIN
  4. PROCHLORPERAZINE MALEATE. [Concomitant]
     Active Substance: PROCHLORPERAZINE MALEATE
  5. ZOMETA [Concomitant]
     Active Substance: ZOLEDRONIC ACID
  6. CIPROFLOXACIN HCI [Concomitant]
  7. MIRALAX [Concomitant]
     Active Substance: POLYETHYLENE GLYCOL 3350
  8. OXYCODONE HCI [Concomitant]
  9. GABAPENTIN. [Concomitant]
     Active Substance: GABAPENTIN
  10. LEVOTHYROXINE. [Concomitant]
     Active Substance: LEVOTHYROXINE
  11. PALBOCICLIB [Suspect]
     Active Substance: PALBOCICLIB
     Indication: SQUAMOUS CELL CARCINOMA OF HEAD AND NECK
     Dosage: 125MG DAYS 1-21 PO
     Route: 048
     Dates: start: 20160217, end: 20160405
  12. PALBOCICLIB [Suspect]
     Active Substance: PALBOCICLIB
     Indication: METASTASIS
     Dosage: 125MG DAYS 1-21 PO
     Route: 048
     Dates: start: 20160217, end: 20160405
  13. DOXYCYCLINE MONOHYDRATE [Concomitant]
     Active Substance: DOXYCYCLINE
  14. CETUXIMAB 250MG/M2 [Suspect]
     Active Substance: CETUXIMAB
     Indication: METASTASIS
     Route: 042
     Dates: start: 20160217, end: 20160406
  15. ONDANSETRON HCI [Concomitant]
  16. TYLENOL [Concomitant]
     Active Substance: ACETAMINOPHEN

REACTIONS (4)
  - Squamous cell carcinoma of head and neck [None]
  - Malignant neoplasm progression [None]
  - Hypercalcaemia of malignancy [None]
  - Confusional state [None]

NARRATIVE: CASE EVENT DATE: 20160427
